FAERS Safety Report 6262363-4 (Version None)
Quarter: 2009Q3

REPORT INFORMATION
  Report Type: 
  Country: None (occurrence: None)
  Receive Date: 20090709
  Receipt Date: 20090707
  Transmission Date: 20100115
  Serious: Yes (Life-Threatening, Other)
  Sender: FDA-Public Use
  Company Number: PHHY2009JP27226

PATIENT
  Age: 30 Year
  Sex: Male
  Weight: 52 kg

DRUGS (4)
  1. TEGRETOL [Suspect]
     Indication: ENCEPHALOPATHY
     Dosage: 400MG, DAILY
     Route: 048
     Dates: start: 20090603, end: 20090625
  2. GABAPENTIN [Concomitant]
     Indication: CONVULSION
     Dosage: 1200 MG, UNK
     Route: 048
     Dates: start: 20090515, end: 20090625
  3. EXCEGRAN [Concomitant]
     Indication: CONVULSION
     Dosage: 200 MG, UNK
     Route: 048
     Dates: start: 20090511, end: 20090625
  4. SOLANAX [Concomitant]
     Indication: ANXIETY
     Dosage: 1.2 MG, UNK
     Route: 048
     Dates: start: 20090529, end: 20090625

REACTIONS (7)
  - C-REACTIVE PROTEIN INCREASED [None]
  - GRANULOCYTE COUNT DECREASED [None]
  - MONOCYTE COUNT INCREASED [None]
  - NEUTROPHIL COUNT DECREASED [None]
  - PYREXIA [None]
  - RESTLESSNESS [None]
  - WHITE BLOOD CELL COUNT DECREASED [None]
